FAERS Safety Report 5882516-4 (Version None)
Quarter: 2008Q3

REPORT INFORMATION
  Report Type: 
  Country: None (occurrence: None)
  Receive Date: 20080913
  Receipt Date: 20080804
  Transmission Date: 20090109
  Serious: No
  Sender: FDA-Public Use
  Company Number: US-ABBOTT-08P-163-0469012-00

PATIENT
  Sex: Female
  Weight: 54.48 kg

DRUGS (6)
  1. HUMIRA [Suspect]
     Indication: RHEUMATOID ARTHRITIS
     Route: 058
     Dates: start: 20080801
  2. LORTAB [Concomitant]
     Indication: PAIN
     Dosage: 1-2 TABS 10/325 MG AS NEEDED
     Route: 048
     Dates: start: 20080201
  3. LORTAB [Concomitant]
     Indication: RHEUMATOID ARTHRITIS
  4. PAROXETINE HCL [Concomitant]
     Indication: DEPRESSION
     Dosage: ONE 10MG TABLET EVERY NIGHT
     Route: 048
     Dates: start: 20080801
  5. ESOMEPRAZOLE MAGNESIUM [Concomitant]
     Indication: GASTRIC ULCER
     Route: 048
     Dates: start: 20080801
  6. SUCRALFATE [Concomitant]
     Indication: GASTRIC ULCER
     Route: 048

REACTIONS (1)
  - FATIGUE [None]
